FAERS Safety Report 6244832-6 (Version None)
Quarter: 2009Q2

REPORT INFORMATION
  Report Type: 
  Country: None (occurrence: None)
  Receive Date: 20090623
  Receipt Date: 20090623
  Transmission Date: 20091009
  Serious: Yes (Life-Threatening, Other)
  Sender: FDA-Public Use
  Company Number: None

PATIENT
  Age: 45 Year
  Sex: Male
  Weight: 68.0396 kg

DRUGS (1)
  1. CANASA [Suspect]
     Indication: PROCTITIS
     Dates: start: 20090215, end: 20090315

REACTIONS (20)
  - ABDOMINAL DISCOMFORT [None]
  - ABDOMINAL PAIN UPPER [None]
  - ALCOHOL INTOLERANCE [None]
  - ASTHMA [None]
  - BRONCHIECTASIS [None]
  - CHEST PAIN [None]
  - COUGH [None]
  - DYSPNOEA [None]
  - EOSINOPHILIA [None]
  - GASTRIC DISORDER [None]
  - GASTROINTESTINAL DISORDER [None]
  - GRANULOMA [None]
  - HAEMORRHAGIC CYST [None]
  - HYPOGAMMAGLOBULINAEMIA [None]
  - LUNG DISORDER [None]
  - LUNG NEOPLASM [None]
  - PROCTITIS [None]
  - RASH [None]
  - RENAL CYST [None]
  - URTICARIA [None]
